FAERS Safety Report 6096218-5 (Version None)
Quarter: 2009Q1

REPORT INFORMATION
  Report Type: 
  Country: None (occurrence: None)
  Receive Date: 20090227
  Receipt Date: 20081006
  Transmission Date: 20090719
  Serious: Yes (Hospitalization)
  Sender: FDA-Public Use
  Company Number: A0750628A

PATIENT
  Age: 58 Year
  Sex: Male

DRUGS (5)
  1. LAMICTAL [Suspect]
     Indication: BIPOLAR DISORDER
     Dosage: 50MG PER DAY
     Route: 048
     Dates: start: 20080902
  2. PRISTIQ [Suspect]
     Indication: BIPOLAR DISORDER
     Dosage: 50MG PER DAY
     Route: 048
     Dates: start: 20080901
  3. CYMBALTA [Suspect]
     Indication: BIPOLAR DISORDER
     Dosage: 60MG PER DAY
     Route: 048
     Dates: start: 20070101, end: 20080901
  4. BENICAR [Concomitant]
  5. ANTIBIOTIC UNSPECIFIED [Concomitant]

REACTIONS (13)
  - ARTHRALGIA [None]
  - CHILLS [None]
  - EOSINOPHIL COUNT INCREASED [None]
  - HAEMOGLOBIN DECREASED [None]
  - HYPERHIDROSIS [None]
  - LYMPHADENECTOMY [None]
  - LYMPHADENOPATHY [None]
  - MALAISE [None]
  - MYALGIA [None]
  - NEUTROPHIL COUNT DECREASED [None]
  - PLATELET COUNT DECREASED [None]
  - PYREXIA [None]
  - RED BLOOD CELL COUNT DECREASED [None]
